FAERS Safety Report 25999470 (Version 1)
Quarter: 2025Q4

REPORT INFORMATION
  Report Type: Spontaneous
  Country: US (occurrence: US)
  Receive Date: 20251105
  Receipt Date: 20251105
  Transmission Date: 20260117
  Serious: Yes (Other)
  Sender: COOPERSURGICAL
  Company Number: US-COOPERSURGICAL, INC.-2025CPS007716

PATIENT
  Age: 32 Year
  Sex: Female
  Weight: 66.213 kg

DRUGS (1)
  1. PARAGARD T 380A [Suspect]
     Active Substance: COPPER
     Indication: Contraception
     Dosage: UNK
     Route: 015
     Dates: start: 20091221, end: 20181106

REACTIONS (12)
  - Surgery [Recovered/Resolved]
  - Cervical dysplasia [Recovered/Resolved]
  - Device breakage [Recovered/Resolved]
  - Foreign body in reproductive tract [Recovered/Resolved]
  - Complication of device removal [Recovered/Resolved]
  - Cervicitis mycoplasmal [Unknown]
  - Actinomyces test positive [Unknown]
  - Uterine cervix stenosis [Recovered/Resolved]
  - Procedural pain [Recovered/Resolved]
  - Intermenstrual bleeding [Unknown]
  - Vaginal haemorrhage [Recovered/Resolved]
  - Unevaluable event [Unknown]

NARRATIVE: CASE EVENT DATE: 20160208
